FAERS Safety Report 8824756 (Version 2)
Quarter: 2012Q4

REPORT INFORMATION
  Report Type: 
  Country: JP (occurrence: JP)
  Receive Date: 20121004
  Receipt Date: 20121011
  Transmission Date: 20130627
  Serious: Yes (Other)
  Sender: FDA-Public Use
  Company Number: JP-PFIZER INC-2012242041

PATIENT
  Age: 77 Year
  Sex: Male

DRUGS (4)
  1. UNASYN-S [Suspect]
     Indication: PNEUMONIA
     Dosage: 6 g, UNK
     Route: 041
     Dates: start: 20120920, end: 20120927
  2. WARFARIN [Concomitant]
     Dosage: 2 tablets, UNK
  3. MUCOSOLATE [Concomitant]
     Dosage: UNK
  4. CLARITH [Concomitant]
     Dosage: UNK

REACTIONS (1)
  - International normalised ratio increased [Unknown]
